FAERS Safety Report 25165734 (Version 1)
Quarter: 2025Q2

REPORT INFORMATION
  Report Type: Spontaneous
  Country: US (occurrence: US)
  Receive Date: 20250407
  Receipt Date: 20250407
  Transmission Date: 20250716
  Serious: Yes (Other)
  Sender: AUROBINDO
  Company Number: US-AUROBINDO-AUR-APL-2025-017793

PATIENT
  Age: 43 Year
  Sex: Female

DRUGS (4)
  1. AMIODARONE HYDROCHLORIDE [Suspect]
     Active Substance: AMIODARONE HYDROCHLORIDE
     Indication: Ventricular tachycardia
     Route: 040
  2. AMIODARONE HYDROCHLORIDE [Suspect]
     Active Substance: AMIODARONE HYDROCHLORIDE
     Route: 041
  3. LIDOCAINE [Suspect]
     Active Substance: LIDOCAINE
     Indication: Ventricular tachycardia
     Route: 040
  4. LIDOCAINE [Suspect]
     Active Substance: LIDOCAINE
     Route: 041

REACTIONS (1)
  - Drug ineffective [Unknown]
